FAERS Safety Report 6603473-9 (Version None)
Quarter: 2010Q1

REPORT INFORMATION
  Report Type: 
  Country: None (occurrence: None)
  Receive Date: 20100226
  Receipt Date: 20090630
  Transmission Date: 20100710
  Serious: No
  Sender: FDA-Public Use
  Company Number: A0794658A

PATIENT
  Age: 47 Year
  Sex: Female

DRUGS (4)
  1. VALTREX [Suspect]
     Indication: GENITAL HERPES
     Dosage: 500MG PER DAY
     Route: 048
     Dates: start: 20030101
  2. LYRICA [Concomitant]
  3. LEXAPRO [Concomitant]
  4. XANAX [Concomitant]

REACTIONS (2)
  - BLOOD TEST [None]
  - TACHYCARDIA [None]
